FAERS Safety Report 6460699-5 (Version None)
Quarter: 2009Q4

REPORT INFORMATION
  Report Type: 
  Country: None (occurrence: None)
  Receive Date: 20091130
  Receipt Date: 20091123
  Transmission Date: 20100525
  Serious: Yes (Hospitalization, Other)
  Sender: FDA-Public Use
  Company Number: US-PFIZER INC-2005075822

PATIENT
  Sex: Female
  Weight: 70 kg

DRUGS (6)
  1. PROVERA [Suspect]
     Indication: HORMONE REPLACEMENT THERAPY
     Dosage: UNK
     Route: 048
     Dates: start: 19870301, end: 19970601
  2. OGEN [Suspect]
     Indication: HORMONE REPLACEMENT THERAPY
     Dosage: UNK
     Route: 048
     Dates: start: 19910501, end: 19970601
  3. PREMARIN [Suspect]
     Indication: HORMONE REPLACEMENT THERAPY
     Dosage: UNK
     Dates: start: 19870301, end: 19910501
  4. PREMPRO [Suspect]
     Indication: HORMONE REPLACEMENT THERAPY
     Dates: start: 19800101, end: 19970101
  5. PREMARIN [Suspect]
     Dosage: UNK
     Route: 067
     Dates: start: 19861201
  6. VOLTAREN [Concomitant]
     Indication: ARTHRALGIA
     Dosage: UNK
     Dates: start: 19950101

REACTIONS (1)
  - BREAST CANCER IN SITU [None]
